FAERS Safety Report 8175376-2 (Version None)
Quarter: 2012Q1

REPORT INFORMATION
  Report Type: 
  Country: None (occurrence: None)
  Receive Date: 20120229
  Receipt Date: 20120223
  Transmission Date: 20120608
  Serious: Yes (Other)
  Sender: FDA-Public Use
  Company Number: BR-PFIZER INC-2012041741

PATIENT
  Age: 53 Year
  Sex: Female
  Weight: 67 kg

DRUGS (4)
  1. VARENICLINE TARTRATE [Suspect]
     Dosage: 1 MG, 2X/DAY (1MG IN THE MORNING AND 1MG AT NIGHT)
     Dates: start: 20120222
  2. DIOVAN HCT [Concomitant]
     Indication: HYPERTENSION
     Dosage: UNSPECIFIED DOSAGE, 1X/DAY
     Dates: start: 20080101
  3. DIOVAN [Concomitant]
     Dosage: UNK
  4. VARENICLINE TARTRATE [Suspect]
     Indication: SMOKING CESSATION THERAPY
     Dosage: 1 TABLET, 1X/DAY
     Route: 048
     Dates: start: 20120215, end: 20120221

REACTIONS (7)
  - INSOMNIA [None]
  - SOMNOLENCE [None]
  - BLOOD PRESSURE FLUCTUATION [None]
  - NERVOUSNESS [None]
  - HYPERTENSION [None]
  - LETHARGY [None]
  - HEADACHE [None]
